FAERS Safety Report 4554087-6 (Version None)
Quarter: 2005Q1

REPORT INFORMATION
  Report Type: 
  Country: None (occurrence: None)
  Receive Date: 20050113
  Receipt Date: 20050113
  Transmission Date: 20050727
  Serious: No
  Sender: FDA-Public Use
  Company Number: None

PATIENT
  Age: 76 Year
  Sex: Male
  Weight: 78 kg

DRUGS (1)
  1. ROSIGLITAZONE   2MG   GLAXOSMITHKLINE [Suspect]
     Indication: DIABETES MELLITUS
     Dosage: 2 MG   EVERY 12 HOURS   OTHER
     Route: 050
     Dates: start: 20041123, end: 20041209

REACTIONS (1)
  - LIVER FUNCTION TEST ABNORMAL [None]
